FAERS Safety Report 12857461 (Version 1)
Quarter: 2016Q4

REPORT INFORMATION
  Report Type: Spontaneous
  Country: US (occurrence: US)
  Receive Date: 20161018
  Receipt Date: 20161018
  Transmission Date: 20170207
  Serious: Yes (Other)
  Sender: FDA-Public Use
  Company Number: US-PFIZER INC-2016477050

PATIENT
  Age: 59 Year
  Sex: Male

DRUGS (27)
  1. LYRICA [Suspect]
     Active Substance: PREGABALIN
     Dosage: 150 MG, 3X/DAY
     Route: 048
  2. METHADONE HYDROCHLORIDE. [Concomitant]
     Active Substance: METHADONE HYDROCHLORIDE
     Indication: PAIN
     Dosage: 10 MG, 3X/DAY AS NEEDED
     Route: 048
  3. RITONAVIR. [Concomitant]
     Active Substance: RITONAVIR
     Dosage: UNK
  4. LISINOPRIL. [Concomitant]
     Active Substance: LISINOPRIL
     Dosage: 40 MG, DAILY
     Route: 048
  5. NICORETTE [Concomitant]
     Active Substance: NICOTINE
     Indication: SMOKING CESSATION THERAPY
     Dosage: 2 MG, AS NEEDED (2MG/1 SQUAR GUM 1 EACH (2 MG TOTAL) EVERY 2 HOURS )
     Route: 048
  6. TRUVADA [Concomitant]
     Active Substance: EMTRICITABINE\TENOFOVIR DISOPROXIL FUMARATE
     Dosage: 1 DF, DAILY
     Route: 048
  7. NASACORT AQ [Concomitant]
     Active Substance: TRIAMCINOLONE ACETONIDE
     Dosage: 2 DF, DAILY
     Route: 045
  8. VIAGRA [Suspect]
     Active Substance: SILDENAFIL CITRATE
     Dosage: 100 MG, AS NEEDED
     Route: 048
  9. NICODERM CQ [Concomitant]
     Active Substance: NICOTINE
     Dosage: 1 DF, DAILY
     Route: 062
  10. HYDROCHLOROTHIAZIDE. [Concomitant]
     Active Substance: HYDROCHLOROTHIAZIDE
     Dosage: 25 MG, DAILY
     Route: 048
  11. ALBUTEROL /00139501/ [Concomitant]
     Active Substance: ALBUTEROL
     Dosage: 2 DF, Q4 TO 6 HOUR
     Route: 048
  12. NORVASC [Suspect]
     Active Substance: AMLODIPINE BESYLATE
     Dosage: 10 MG, DAILY
     Route: 048
  13. GLYCOLAX [Concomitant]
     Active Substance: POLYETHYLENE GLYCOL 3350
     Dosage: 17 GM IN 8 OUNCES OF WATER, DAILY
     Route: 048
  14. TYLENOL [Concomitant]
     Active Substance: ACETAMINOPHEN
     Indication: PAIN
     Dosage: 650 MG, 4X/DAY AS NEEDED
     Route: 048
  15. RALTEGRAVIR. [Concomitant]
     Active Substance: RALTEGRAVIR
     Dosage: 400 MG, 2X/DAY
     Route: 048
  16. HUMALOG [Concomitant]
     Active Substance: INSULIN LISPRO
     Indication: HYPERGLYCAEMIA
     Dosage: 20 IU, 3X/DAY
  17. LANTUS [Concomitant]
     Active Substance: INSULIN GLARGINE
     Dosage: 40 IU, 2X/DAY [40 UNITS SQ Q AM AND 40 UNITS QHS]
     Route: 058
  18. LAC-HYDRIN [Concomitant]
     Active Substance: AMMONIUM LACTATE
     Dosage: UNK UNK, 1X/DAY
  19. VITAMIN B12 [Concomitant]
     Active Substance: CYANOCOBALAMIN
     Dosage: 1 ML, WEEKLY (1,000 MCG/1 ML INJECTION AT A DOSE OF 1 ML EVERY WEEK )
     Route: 030
  20. SINGULAIR [Concomitant]
     Active Substance: MONTELUKAST SODIUM
     Dosage: 10 MG, 1X/DAY
     Route: 048
  21. PREZISTA [Concomitant]
     Active Substance: DARUNAVIR ETHANOLATE
     Dosage: 800 MG, DAILY
     Route: 048
  22. CHANTIX [Suspect]
     Active Substance: VARENICLINE TARTRATE
     Dosage: 1 MG, 2X/DAY
     Route: 048
  23. SUBOXONE [Suspect]
     Active Substance: BUPRENORPHINE HYDROCHLORIDE\NALOXONE HYDROCHLORIDE
     Indication: DRUG DEPENDENCE
     Dosage: 16 MG, UNK
  24. TIMOPTIC [Concomitant]
     Active Substance: TIMOLOL MALEATE
     Dosage: 1 GTT, 2X/DAY
     Route: 047
  25. NORVIR [Concomitant]
     Active Substance: RITONAVIR
     Dosage: 100 MG, DAILY
  26. ZOLPIDEM TARTRATE. [Concomitant]
     Active Substance: ZOLPIDEM TARTRATE
     Dosage: 10 MG, 1X/DAY
     Route: 048
  27. MULTIVITAMIN /00097801/ [Concomitant]
     Active Substance: VITAMINS
     Dosage: 1 DF, DAILY

REACTIONS (24)
  - Post-traumatic stress disorder [Unknown]
  - Cough [Unknown]
  - Muscular weakness [Unknown]
  - Seizure [Unknown]
  - Vitamin B12 deficiency [Unknown]
  - Restless legs syndrome [Unknown]
  - Erectile dysfunction [Unknown]
  - Back pain [Unknown]
  - Generalised anxiety disorder [Unknown]
  - Hypogonadism male [Unknown]
  - Hypertension [Unknown]
  - Foot fracture [Unknown]
  - Neuropathy peripheral [Unknown]
  - Insomnia [Unknown]
  - Drug dependence [Unknown]
  - Pain in extremity [Unknown]
  - Anger [Unknown]
  - Gastrooesophageal reflux disease [Unknown]
  - Affective disorder [Unknown]
  - Essential hypertension [Unknown]
  - Osteoporosis [Unknown]
  - Anogenital dysplasia [Unknown]
  - Hyperlipidaemia [Unknown]
  - Weight decreased [Unknown]
